FAERS Safety Report 5089846-7 (Version None)
Quarter: 2006Q3

REPORT INFORMATION
  Report Type: 
  Country: None (occurrence: None)
  Receive Date: 20060823
  Receipt Date: 20060809
  Transmission Date: 20061208
  Serious: Yes (Other)
  Sender: FDA-Public Use
  Company Number: 2006-DE-04193GD

PATIENT
  Age: 60 Year
  Sex: Male

DRUGS (7)
  1. PREDNISONE TAB [Suspect]
     Indication: POLYARTHRITIS
     Dosage: 10 MG
  2. IBUPROFEN [Suspect]
  3. METHOTREXATE [Suspect]
     Indication: POLYARTHRITIS
  4. INFLIXIMAB (INFLIXIMAB) [Suspect]
     Indication: POLYARTHRITIS
  5. MINOCYCLINE HCL [Concomitant]
  6. CLOFAZIMINE (CLOFAZIMINE) [Concomitant]
  7. RIFAMPICIN [Concomitant]

REACTIONS (8)
  - ANAEMIA [None]
  - DRUG HYPERSENSITIVITY [None]
  - IMMUNE RECONSTITUTION SYNDROME [None]
  - LEPROSY [None]
  - NEURALGIA [None]
  - OEDEMA PERIPHERAL [None]
  - ONYCHOMYCOSIS [None]
  - SENSORY LOSS [None]
